FAERS Safety Report 9187920 (Version 2)
Quarter: 2013Q1

REPORT INFORMATION
  Report Type: Spontaneous
  Country: DE (occurrence: DE)
  Receive Date: 20130325
  Receipt Date: 20130325
  Transmission Date: 20140127
  Serious: Yes (Other)
  Sender: FDA-Public Use
  Company Number: CHPA2013DE004349

PATIENT
  Age: 55 Year
  Sex: Male
  Weight: 92 kg

DRUGS (2)
  1. NICOTINELL TTS [Suspect]
     Indication: SMOKING CESSATION THERAPY
     Dosage: UNK, UNK
     Route: 062
     Dates: start: 201210, end: 201210
  2. PANTOPRAZOL [Concomitant]
     Dosage: UNK, UNK

REACTIONS (3)
  - Musculoskeletal pain [Recovered/Resolved]
  - Nausea [Unknown]
  - Dizziness [Unknown]
